FAERS Safety Report 8326602-8 (Version None)
Quarter: 2012Q2

REPORT INFORMATION
  Report Type: 
  Country: None (occurrence: None)
  Receive Date: 20120501
  Receipt Date: 20090821
  Transmission Date: 20120825
  Serious: No
  Sender: FDA-Public Use
  Company Number: US-TEVA-2009009893

PATIENT
  Sex: Female
  Weight: 44.946 kg

DRUGS (8)
  1. HYDROCHLOROTHIAZIDE [Concomitant]
     Indication: URINE CALCIUM
  2. SEROQUEL [Concomitant]
     Indication: DEPRESSION
  3. ALENDRONATE SODIUM [Concomitant]
     Indication: OSTEOPOROSIS
  4. FLUOXETINE [Concomitant]
     Indication: DEPRESSION
  5. ZOLPIDEM [Concomitant]
     Indication: STRESS
  6. ZOLPIDEM [Concomitant]
     Indication: INSOMNIA
  7. PROVIGIL [Concomitant]
     Indication: NARCOLEPSY
  8. NUVIGIL [Suspect]
     Indication: NARCOLEPSY
     Dosage: 150 MILLIGRAM;
     Dates: start: 20090811

REACTIONS (1)
  - DRUG TOLERANCE [None]
